FAERS Safety Report 7221202-5 (Version None)
Quarter: 2011Q1

REPORT INFORMATION
  Report Type: 
  Country: None (occurrence: None)
  Receive Date: 20110112
  Receipt Date: 20110110
  Transmission Date: 20110831
  Serious: Yes (Death)
  Sender: FDA-Public Use
  Company Number: GB-B.I. PHARMACEUTICALS,INC./RIDGEFIELD-2011-UK-00015UK

PATIENT
  Age: 57 Year
  Sex: Female

DRUGS (19)
  1. CHLORPROMAZINE [Concomitant]
     Dosage: 300 MG
  2. PERINDOPRIL ERBUMINE [Concomitant]
     Dosage: 8 MG
  3. SENNA PLUS TABLETS [Concomitant]
     Dosage: 7.5MG 2 NOCTE
  4. CITALOPRAM [Concomitant]
     Dosage: 20MG 1 MANE
  5. FUROSEMIDE [Concomitant]
     Dosage: 20 MG
  6. MACROGOL [Concomitant]
     Dosage: TDS
     Route: 048
  7. PROCYCLIDINE HYDROCHLORIDE 2MG TAB [Concomitant]
     Dosage: 15 MG
  8. BISACODYL [Concomitant]
     Dosage: 5MG 2 NOCTE PRN
  9. FLUTICASONE PROPIONATE [Concomitant]
     Dosage: 2 PUFFS DAILY
     Route: 055
  10. NOVOMIX [Concomitant]
     Dosage: FLEXPEN,28 UNITS MANE 16 UNITS PM
     Route: 023
  11. ALBUTEROL [Concomitant]
     Dosage: 100MCG/PUFF, AT 2 PUFFS PRN
     Route: 055
  12. SODIUM PICOSULFATE [Concomitant]
     Dosage: 5MG/5ML 10ML BD
     Route: 048
  13. ZAPONEX [Suspect]
     Dosage: 650 MG
     Route: 048
     Dates: start: 20090626, end: 20101114
  14. CHLORPROMAZINE [Concomitant]
     Dosage: 50MG 1 BD PRN
  15. DEXTROSE [Concomitant]
     Dosage: (GEL 40% ASD) 80GRAMS
  16. SPIRIVA [Suspect]
     Indication: ASTHMA
     Dosage: 18 MCG
     Route: 055
  17. ATORVASTATIN [Concomitant]
     Dosage: 40 MG
  18. METFORMIN [Concomitant]
     Dosage: 500MG 2 MANE, 1 AT LUNCHTIME, 2 IN EVENING-DISPENSE
  19. SAMETEROL [Concomitant]
     Dosage: 25MCG/ACTUATIONS 2 PUFFS
     Route: 055

REACTIONS (1)
  - CORONARY ARTERY OCCLUSION [None]
